FAERS Safety Report 13415268 (Version 2)
Quarter: 2017Q2

REPORT INFORMATION
  Report Type: Spontaneous
  Country: US (occurrence: US)
  Receive Date: 20170407
  Receipt Date: 20170509
  Transmission Date: 20170830
  Serious: No
  Sender: FDA-Public Use
  Company Number: US-ASTRAZENECA-2017SE33978

PATIENT
  Age: 50 Year
  Sex: Female
  Weight: 49.9 kg

DRUGS (5)
  1. PRILOSEC [Suspect]
     Active Substance: OMEPRAZOLE MAGNESIUM
     Indication: GASTROOESOPHAGEAL REFLUX DISEASE
     Route: 048
     Dates: start: 2012, end: 2014
  2. PANTOPRAZOLE [Concomitant]
     Active Substance: PANTOPRAZOLE
     Indication: GASTROOESOPHAGEAL REFLUX DISEASE
  3. RANITIDINE. [Concomitant]
     Active Substance: RANITIDINE
     Indication: GASTROOESOPHAGEAL REFLUX DISEASE
  4. NEXIUM [Suspect]
     Active Substance: ESOMEPRAZOLE MAGNESIUM
     Indication: GASTROOESOPHAGEAL REFLUX DISEASE
     Route: 048
     Dates: start: 200704, end: 2008
  5. PRILOSEC [Suspect]
     Active Substance: OMEPRAZOLE MAGNESIUM
     Indication: GASTROOESOPHAGEAL REFLUX DISEASE
     Dosage: OMEPAZOLE 40 MG DAILY
     Route: 048
     Dates: start: 201612, end: 201612

REACTIONS (17)
  - Hypersensitivity [Unknown]
  - Feeling abnormal [Unknown]
  - Intentional product misuse [Unknown]
  - Weight decreased [Unknown]
  - Cough [Unknown]
  - Dysphonia [Unknown]
  - Insurance issue [Unknown]
  - Increased upper airway secretion [Unknown]
  - Gastrooesophageal reflux disease [Not Recovered/Not Resolved]
  - Nausea [Unknown]
  - Anxiety [Unknown]
  - Irritable bowel syndrome [Not Recovered/Not Resolved]
  - Lung disorder [Unknown]
  - Diarrhoea [Unknown]
  - Drug ineffective [Unknown]
  - Oral pain [Unknown]
  - Dizziness [Unknown]

NARRATIVE: CASE EVENT DATE: 2015
